FAERS Safety Report 5000877-5 (Version None)
Quarter: 2006Q2

REPORT INFORMATION
  Report Type: 
  Country: None (occurrence: None)
  Receive Date: 20060512
  Receipt Date: 20050429
  Transmission Date: 20061013
  Serious: No
  Sender: FDA-Public Use
  Company Number: US-GLAXOSMITHKLINE-A0556309A

PATIENT
  Age: 72 Year
  Sex: Female

DRUGS (5)
  1. RELAFEN [Suspect]
     Indication: RHEUMATOID ARTHRITIS
     Dosage: 750MG TWICE PER DAY
     Route: 048
     Dates: start: 20050421
  2. EXTRA STRENGTH TYLENOL [Concomitant]
  3. MACROBID [Concomitant]
  4. TARKA [Concomitant]
  5. VICODIN [Concomitant]

REACTIONS (3)
  - BLADDER PAIN [None]
  - DRUG INEFFECTIVE [None]
  - NAUSEA [None]
